FAERS Safety Report 9176906 (Version 1)
Quarter: 2013Q1

REPORT INFORMATION
  Report Type: Spontaneous
  Country: GB (occurrence: None)
  Receive Date: 20130319
  Receipt Date: 20130319
  Transmission Date: 20140127
  Serious: Yes (Disabling, Other)
  Sender: FDA-Public Use
  Company Number: GER/UKI/13/0028558

PATIENT
  Age: 36 Year
  Sex: Female
  Weight: 101 kg

DRUGS (5)
  1. QUETIAPINE (QUETAPINE FUMARATE) [Suspect]
     Indication: BIPOLAR I DISORDER
     Route: 048
     Dates: start: 20061001
  2. BECONASE (BECLOMETASONE DIPROPIONATE) [Concomitant]
  3. CLINITAS (CARBOMER) [Concomitant]
  4. COD LIVER [Concomitant]
  5. ZOPICLONE (ZOPICLONE) [Concomitant]

REACTIONS (2)
  - Agoraphobia [None]
  - Weight increased [None]
